FAERS Safety Report 11209431 (Version 1)
Quarter: 2015Q2

REPORT INFORMATION
  Report Type: Spontaneous
  Country: AT (occurrence: AT)
  Receive Date: 20150622
  Receipt Date: 20150622
  Transmission Date: 20150821
  Serious: Yes (Hospitalization, Other)
  Sender: FDA-Public Use
  Company Number: PHHY2015AT058546

PATIENT
  Age: 78 Year
  Sex: Female
  Weight: 70 kg

DRUGS (1)
  1. AFINITOR [Suspect]
     Active Substance: EVEROLIMUS
     Indication: RENAL CELL CARCINOMA
     Dosage: 10 MG, QD
     Route: 048
     Dates: start: 20150407, end: 20150611

REACTIONS (7)
  - Aspartate aminotransferase [Recovered/Resolved]
  - Blood lactate dehydrogenase increased [Recovered/Resolved]
  - Nausea [Unknown]
  - Transaminases increased [Unknown]
  - Gamma-glutamyltransferase increased [Recovered/Resolved]
  - Fatigue [Unknown]
  - Blood alkaline phosphatase increased [Recovered/Resolved]

NARRATIVE: CASE EVENT DATE: 20150512
